FAERS Safety Report 5996700-2 (Version None)
Quarter: 2008Q4

REPORT INFORMATION
  Report Type: 
  Country: None (occurrence: None)
  Receive Date: 20081212
  Receipt Date: 20081022
  Transmission Date: 20090506
  Serious: No
  Sender: FDA-Public Use
  Company Number: US-ABBOTT-08P-163-0483447-00

PATIENT
  Sex: Female

DRUGS (7)
  1. HUMIRA [Suspect]
     Indication: CROHN'S DISEASE
     Dates: start: 20081006, end: 20081006
  2. HUMIRA [Suspect]
  3. MESALAMINE [Concomitant]
     Indication: CROHN'S DISEASE
  4. LANSOPRAZOLE [Concomitant]
     Indication: GASTROOESOPHAGEAL REFLUX DISEASE
  5. BIRTH CONTROL [Concomitant]
     Indication: DRUG USE FOR UNKNOWN INDICATION
  6. MAXAIR [Concomitant]
     Indication: ASTHMA
  7. ZOLMITRIPTAN [Concomitant]
     Indication: CROHN'S DISEASE

REACTIONS (1)
  - OROPHARYNGEAL PAIN [None]
